FAERS Safety Report 18218592 (Version 1)
Quarter: 2020Q3

REPORT INFORMATION
  Report Type: Spontaneous
  Country: US (occurrence: US)
  Receive Date: 20200901
  Receipt Date: 20200901
  Transmission Date: 20201103
  Serious: Yes (Other)
  Sender: FDA-Public Use
  Company Number: US-GW PHARMA-202008USGW02928

PATIENT

DRUGS (2)
  1. EPIDIOLEX [Suspect]
     Active Substance: CANNABIDIOL
     Indication: PRODUCT USED FOR UNKNOWN INDICATION
     Dosage: 500 MILLIGRAM, BID (FIRST SHIPPED ON 09 MAY 2019)
     Route: 048
     Dates: start: 201905, end: 202008
  2. EPIDIOLEX [Suspect]
     Active Substance: CANNABIDIOL
     Dosage: 1000 MILLIGRAM, BID
     Route: 048
     Dates: start: 202008

REACTIONS (2)
  - Treatment noncompliance [Unknown]
  - Seizure [Unknown]

NARRATIVE: CASE EVENT DATE: 20200810
